FAERS Safety Report 17175912 (Version 1)
Quarter: 2019Q4

REPORT INFORMATION
  Report Type: Spontaneous
  Country: FR (occurrence: FR)
  Receive Date: 20191219
  Receipt Date: 20191219
  Transmission Date: 20200122
  Serious: Yes (Hospitalization)
  Sender: FDA-Public Use
  Company Number: FR-ROCHE-2496730

PATIENT
  Age: 14 Year
  Sex: Female
  Weight: 53 kg

DRUGS (4)
  1. DIAZEPAM. [Suspect]
     Active Substance: DIAZEPAM
     Indication: POISONING DELIBERATE
     Dosage: 2 TABLETS
     Route: 048
     Dates: start: 20190125, end: 20190125
  2. ALPRAZOLAM. [Suspect]
     Active Substance: ALPRAZOLAM
     Indication: POISONING DELIBERATE
     Dosage: 2 TABLETS
     Route: 048
     Dates: start: 20190125, end: 20190125
  3. LERCANIDIPINE HYDROCHLORIDE [Suspect]
     Active Substance: LERCANIDIPINE HYDROCHLORIDE
     Indication: POISONING DELIBERATE
     Dosage: 5 TABLETS
     Route: 048
     Dates: start: 20190125, end: 20190125
  4. ZOLPIDEM [Suspect]
     Active Substance: ZOLPIDEM TARTRATE
     Indication: POISONING DELIBERATE
     Dosage: 4 TABLETS
     Route: 048
     Dates: start: 20190125, end: 20190125

REACTIONS (2)
  - Headache [Recovered/Resolved]
  - Chest discomfort [Recovered/Resolved]

NARRATIVE: CASE EVENT DATE: 20190126
